FAERS Safety Report 9841233 (Version 1)
Quarter: 2014Q1

REPORT INFORMATION
  Report Type: Spontaneous
  Country: US (occurrence: US)
  Receive Date: 20140124
  Receipt Date: 20140124
  Transmission Date: 20141002
  Serious: Yes (Other)
  Sender: FDA-Public Use
  Company Number: US-ASTRAZENECA-2014SE03997

PATIENT
  Age: 57 Year
  Sex: Female
  Weight: 86.2 kg

DRUGS (13)
  1. SEROQUEL [Suspect]
     Indication: BIPOLAR DISORDER
     Route: 048
     Dates: start: 2004
  2. SEROQUEL [Suspect]
     Indication: PSYCHOTIC DISORDER
     Route: 048
     Dates: start: 2004
  3. LEVOTHYROXINE [Concomitant]
     Indication: THYROID DISORDER
     Route: 048
     Dates: start: 2006
  4. DIOVAN + HCT [Concomitant]
     Indication: BLOOD PRESSURE ABNORMAL
     Dosage: 325-25 MG, DAILY
     Route: 048
     Dates: start: 2001
  5. ABILIFY [Concomitant]
     Indication: BIPOLAR DISORDER
     Route: 048
     Dates: start: 2010
  6. BUSPAR [Concomitant]
     Route: 048
     Dates: start: 2004
  7. OXYCONTIN [Concomitant]
     Indication: NECK PAIN
     Route: 048
     Dates: start: 2001
  8. OXYCONTIN [Concomitant]
     Indication: BACK PAIN
     Route: 048
     Dates: start: 2001
  9. OXYCONTIN [Concomitant]
     Indication: NECK PAIN
     Route: 048
     Dates: start: 2001
  10. OXYCONTIN [Concomitant]
     Indication: BACK PAIN
     Route: 048
     Dates: start: 2001
  11. LOVAZA [Concomitant]
     Indication: BLOOD TRIGLYCERIDES INCREASED
     Route: 048
     Dates: start: 2008
  12. PROSOM [Concomitant]
     Indication: SLEEP DISORDER
     Route: 048
     Dates: start: 2006
  13. BACLOFEN [Concomitant]
     Indication: MUSCLE SPASMS
     Route: 048
     Dates: start: 2013

REACTIONS (11)
  - Atrial fibrillation [Unknown]
  - Cataract [Unknown]
  - Fall [Recovered/Resolved with Sequelae]
  - Concussion [Unknown]
  - Hypothyroidism [Unknown]
  - Sick sinus syndrome [Unknown]
  - Psychotic disorder [Unknown]
  - Heart rate decreased [Unknown]
  - Blood cholesterol increased [Unknown]
  - Drug dose omission [Unknown]
  - Off label use [Unknown]
